FAERS Safety Report 8577450-5 (Version None)
Quarter: 2012Q3

REPORT INFORMATION
  Report Type: 
  Country: None (occurrence: None)
  Receive Date: 20120807
  Receipt Date: 20120801
  Transmission Date: 20120928
  Serious: Yes (Other)
  Sender: FDA-Public Use
  Company Number: US-PFIZER INC-2012187184

PATIENT
  Age: 60 Year
  Sex: Female

DRUGS (2)
  1. ALBUTEROL [Concomitant]
     Dosage: UNK
  2. NEURONTIN [Suspect]
     Dosage: 600 MG (1 TAB), 3X/DAY (TID)

REACTIONS (13)
  - KNEE DEFORMITY [None]
  - WEIGHT INCREASED [None]
  - PAIN IN EXTREMITY [None]
  - SKIN DISCOLOURATION [None]
  - DRUG HYPERSENSITIVITY [None]
  - PARAESTHESIA [None]
  - PAIN [None]
  - BACK PAIN [None]
  - PERIPHERAL VASCULAR DISORDER [None]
  - MUSCULAR WEAKNESS [None]
  - WALKING AID USER [None]
  - NEUROPATHY PERIPHERAL [None]
  - HYPOAESTHESIA [None]
